FAERS Safety Report 8485376-0 (Version None)
Quarter: 2012Q3

REPORT INFORMATION
  Report Type: 
  Country: None (occurrence: None)
  Receive Date: 20120703
  Receipt Date: 20120627
  Transmission Date: 20120928
  Serious: Yes (Other)
  Sender: FDA-Public Use
  Company Number: US-TEVA-345752USA

PATIENT
  Sex: Female
  Weight: 66.284 kg

DRUGS (25)
  1. XOLAIR [Concomitant]
     Indication: ASTHMA
     Dosage: PRN
     Route: 058
  2. SAVELLA [Concomitant]
     Indication: FIBROMYALGIA
     Dosage: 200 MILLIGRAM;
     Route: 048
     Dates: start: 20090101
  3. CRYSTALLINE VIT B12 INJ [Concomitant]
     Indication: FATIGUE
     Route: 030
  4. DERMA-SMOOTHE/FS [Concomitant]
     Indication: PSORIASIS
     Dosage: EVERY NIGHT
     Route: 061
  5. NASACORT [Concomitant]
     Indication: SINUS DISORDER
     Route: 055
  6. ATARAX [Concomitant]
     Indication: PRURITUS
     Route: 048
  7. COMBIVENT [Concomitant]
     Indication: ASTHMA
     Dosage: PRN
     Route: 055
  8. RESTASIS [Concomitant]
     Indication: DRY EYE
  9. MIRALAX [Concomitant]
     Indication: CONSTIPATION
     Dosage: 1 SCOOP Q AM
     Route: 048
     Dates: start: 20110101
  10. PRILOSEC [Concomitant]
     Indication: GASTROOESOPHAGEAL REFLUX DISEASE
     Dosage: 80 MILLIGRAM;
     Route: 048
  11. DIOVAN [Concomitant]
     Indication: HYPERTENSION
     Dosage: 320 MILLIGRAM;
     Route: 048
  12. KLONOPIN [Concomitant]
     Indication: RESTLESS LEGS SYNDROME
     Dosage: .5 MILLIGRAM; QHS
     Route: 048
     Dates: start: 20110101
  13. PULMICORT [Concomitant]
     Indication: SINUS DISORDER
  14. MEDROL [Concomitant]
     Indication: ASTHMA
     Dosage: Q AM UP TO 3 - 4/DAY
     Dates: start: 20100101
  15. ZOFRAN [Concomitant]
     Indication: NAUSEA
     Dosage: 24 MILLIGRAM;
     Route: 048
     Dates: start: 20090101
  16. ESTRACE [Concomitant]
     Indication: HORMONE REPLACEMENT THERAPY
     Dosage: 3 MILLIGRAM;
     Route: 048
  17. LIBRAX [Concomitant]
     Indication: ABDOMINAL PAIN UPPER
     Dosage: PRN
     Route: 048
  18. TORADOL [Concomitant]
     Indication: PAIN
     Route: 030
  19. SCELAXIN [Concomitant]
     Indication: PAIN
     Dosage: 1/2 TAB QHS
     Route: 048
     Dates: start: 20111101
  20. MULTIPLE INJECTIONS TO SCALP [Concomitant]
     Indication: PSORIASIS
     Dosage: Q 2 -3 WEEKS
  21. NUVIGIL [Suspect]
     Indication: SLEEP APNOEA SYNDROME
     Dosage: 250 MILLIGRAM; Q AM
     Route: 048
     Dates: start: 20090101
  22. PRECOSE [Concomitant]
     Indication: DIABETES MELLITUS
     Dosage: 210 MILLIGRAM;
     Route: 048
  23. AMATESE [Concomitant]
     Indication: CONSTIPATION
     Route: 048
  24. URSODIOL [Concomitant]
     Indication: HEPATIC CIRRHOSIS
     Dosage: 600 MILLIGRAM;
     Route: 048
     Dates: start: 20080101
  25. IMMUNE GLOBULIN INTRAVENOUS (HUMAN) [Concomitant]
     Route: 042

REACTIONS (4)
  - LOSS OF CONSCIOUSNESS [None]
  - FALL [None]
  - DRUG INEFFECTIVE [None]
  - MUSCLE INJURY [None]
